FAERS Safety Report 5515225-1 (Version None)
Quarter: 2007Q4

REPORT INFORMATION
  Report Type: 
  Country: None (occurrence: None)
  Receive Date: 20071113
  Receipt Date: 20071106
  Transmission Date: 20080405
  Serious: Yes (Other)
  Sender: FDA-Public Use
  Company Number: US-GENENTECH-243814

PATIENT

DRUGS (1)
  1. RITUXAN [Suspect]
     Indication: GUILLAIN-BARRE SYNDROME

REACTIONS (1)
  - PARALYSIS [None]
